FAERS Safety Report 9549998 (Version 1)
Quarter: 2013Q3

REPORT INFORMATION
  Report Type: Report from Study
  Country: US (occurrence: US)
  Receive Date: 20130924
  Receipt Date: 20130924
  Transmission Date: 20140515
  Serious: Yes (Hospitalization)
  Sender: FDA-Public Use
  Company Number: US-GLAXOSMITHKLINE-A1042514A

PATIENT
  Age: 65 Year
  Sex: Male
  Weight: 86 kg

DRUGS (16)
  1. MELPHALAN [Suspect]
     Indication: AMYLOIDOSIS
     Route: 042
  2. BORTEZOMIB [Suspect]
     Indication: AMYLOIDOSIS
     Route: 042
     Dates: start: 20130726, end: 20130805
  3. DEXAMETHASONE [Suspect]
     Indication: AMYLOIDOSIS
  4. AMBIEN [Concomitant]
  5. ATIVAN [Concomitant]
  6. PANTOPRAZOLE [Concomitant]
  7. FINASTERIDE [Concomitant]
  8. COMBIVENT [Concomitant]
  9. ERGOCALCIFEROL [Concomitant]
  10. ACYCLOVIR [Concomitant]
  11. LEVAQUIN [Concomitant]
  12. DIFLUCAN [Concomitant]
  13. COMPAZINE [Concomitant]
  14. MIDODRINE [Concomitant]
  15. KYTRIL [Concomitant]
  16. LOPERAMIDE [Concomitant]

REACTIONS (1)
  - Hypotension [Recovered/Resolved]
